FAERS Safety Report 7518738-6 (Version None)
Quarter: 2011Q2

REPORT INFORMATION
  Report Type: 
  Country: None (occurrence: None)
  Receive Date: 20110601
  Receipt Date: 20110601
  Transmission Date: 20111010
  Serious: Yes (Other)
  Sender: FDA-Public Use
  Company Number: None

PATIENT
  Sex: Female
  Weight: 82.1011 kg

DRUGS (1)
  1. NIASPAN [Suspect]
     Indication: BLOOD CHOLESTEROL INCREASED
     Dosage: 1,500 MGS NIGHTLY BUCCAL
     Route: 002
     Dates: start: 20080115, end: 20110522

REACTIONS (5)
  - WEIGHT INCREASED [None]
  - PALPITATIONS [None]
  - SINUS DISORDER [None]
  - DRY SKIN [None]
  - OEDEMA PERIPHERAL [None]
